FAERS Safety Report 8062703-X (Version None)
Quarter: 2012Q1

REPORT INFORMATION
  Report Type: 
  Country: None (occurrence: None)
  Receive Date: 20120123
  Receipt Date: 20120118
  Transmission Date: 20120608
  Serious: Yes (Death, Life-Threatening)
  Sender: FDA-Public Use
  Company Number: JP-SANOFI-AVENTIS-2011SA065458

PATIENT
  Age: 74 Year
  Sex: Male
  Weight: 54 kg

DRUGS (15)
  1. ZOLPIDEM [Concomitant]
     Indication: INSOMNIA
     Route: 048
     Dates: start: 20110228, end: 20110526
  2. NAPROXEN [Concomitant]
     Indication: TUMOUR ASSOCIATED FEVER
     Route: 048
     Dates: start: 20110302, end: 20110526
  3. MAGNESIUM SULFATE [Concomitant]
     Indication: CONSTIPATION
     Route: 048
     Dates: start: 20110421, end: 20110526
  4. GRANISETRON [Concomitant]
     Indication: PREMEDICATION
     Route: 041
     Dates: end: 20110512
  5. OXALIPLATIN [Suspect]
     Indication: RECTAL CANCER
     Dosage: THE PATIENT RECIEVED 3 CYCLES AT 130.7 MG/M2
     Route: 041
     Dates: end: 20110512
  6. ASPIRIN [Concomitant]
     Indication: CEREBRAL INFARCTION
     Route: 048
     Dates: start: 20110311, end: 20110526
  7. ALMARL [Concomitant]
     Indication: HYPERTENSION
     Route: 048
     Dates: start: 20110329, end: 20110526
  8. XELODA [Concomitant]
     Indication: RECTAL CANCER
     Dosage: THE PATIENT RECIEVED THREE CYCLES.
     Route: 048
     Dates: start: 20110512, end: 20110517
  9. RABEPRAZOLE SODIUM [Concomitant]
     Indication: GASTRIC ULCER
     Route: 048
     Dates: start: 20110302, end: 20110616
  10. XELODA [Concomitant]
     Dosage: TOTAL OF 3 CYCLES
     Route: 048
     Dates: end: 20110512
  11. DEXAMETHASONE SODIUM PHOSPHATE [Concomitant]
     Indication: PREMEDICATION
     Route: 041
     Dates: end: 20110512
  12. AMLODIPINE BESYLATE [Concomitant]
     Indication: HYPERTENSION
     Route: 048
     Dates: start: 20110310, end: 20110526
  13. VALSARTAN [Concomitant]
     Indication: HYPERTENSION
     Route: 048
     Dates: start: 20110310, end: 20110526
  14. OLMESARTAN MEDOXOMIL [Concomitant]
     Indication: HYPERTENSION
     Route: 048
     Dates: start: 20110311, end: 20110526
  15. REMINARON [Concomitant]
     Route: 041
     Dates: start: 20110317, end: 20110418

REACTIONS (3)
  - PERFORMANCE STATUS DECREASED [None]
  - TUMOUR LYSIS SYNDROME [None]
  - RENAL FAILURE ACUTE [None]
